FAERS Safety Report 8326635-1 (Version None)
Quarter: 2012Q2

REPORT INFORMATION
  Report Type: 
  Country: None (occurrence: None)
  Receive Date: 20120501
  Receipt Date: 20090914
  Transmission Date: 20120825
  Serious: No
  Sender: FDA-Public Use
  Company Number: US-TEVA-2009010338

PATIENT
  Sex: Female
  Weight: 62.652 kg

DRUGS (4)
  1. NUVIGIL [Suspect]
     Indication: DEPRESSION
     Dosage: 150 MILLIGRAM;
     Route: 048
     Dates: start: 20090910, end: 20090912
  2. LORAZEPAM [Concomitant]
     Indication: ANXIETY
  3. LIBRAX [Concomitant]
     Indication: ABDOMINAL PAIN UPPER
     Dates: start: 20080101
  4. LEXAPRO [Concomitant]
     Indication: DEPRESSION

REACTIONS (3)
  - ANXIETY [None]
  - DEPRESSION [None]
  - DIARRHOEA [None]
